FAERS Safety Report 18391987 (Version 5)
Quarter: 2021Q1

REPORT INFORMATION
  Report Type: Spontaneous
  Country: US (occurrence: US)
  Receive Date: 20201016
  Receipt Date: 20210211
  Transmission Date: 20210419
  Serious: Yes (Hospitalization, Other)
  Sender: FDA-Public Use
  Company Number: US-SA-2020SA288319

PATIENT
  Age: 79 Year
  Sex: Male
  Weight: 78.91 kg

DRUGS (14)
  1. METFORMIN [Concomitant]
     Active Substance: METFORMIN HYDROCHLORIDE
  2. ALLOPURINOL. [Concomitant]
     Active Substance: ALLOPURINOL
  3. HYDROXYZINE HCL [Concomitant]
     Active Substance: HYDROXYZINE HYDROCHLORIDE
  4. LISINOPRIL. [Concomitant]
     Active Substance: LISINOPRIL
  5. DUPIXENT [Suspect]
     Active Substance: DUPILUMAB
     Indication: DERMATITIS ATOPIC
     Dosage: 300 MG, QOW
     Route: 058
     Dates: start: 20200910, end: 2020
  6. BENZONATATE. [Concomitant]
     Active Substance: BENZONATATE
  7. LANTUS [Concomitant]
     Active Substance: INSULIN GLARGINE
  8. MESALAMINE. [Concomitant]
     Active Substance: MESALAMINE
  9. DUPIXENT [Suspect]
     Active Substance: DUPILUMAB
     Indication: DERMATITIS
     Dosage: 300 MG, QOW 300 MG/2ML
     Route: 030
     Dates: start: 20201109, end: 20201109
  10. ALBUTEROL [SALBUTAMOL] [Concomitant]
     Active Substance: ALBUTEROL
  11. AMLODIPINE [Concomitant]
     Active Substance: AMLODIPINE BESYLATE
  12. CARVEDILOL. [Concomitant]
     Active Substance: CARVEDILOL
  13. GLIPIZIDE. [Concomitant]
     Active Substance: GLIPIZIDE
  14. LORAZEPAM. [Concomitant]
     Active Substance: LORAZEPAM

REACTIONS (7)
  - Incorrect route of product administration [Unknown]
  - Urticaria [Recovered/Resolved]
  - Hospitalisation [Unknown]
  - Pneumonia [Not Recovered/Not Resolved]
  - Rash [Recovered/Resolved]
  - Adverse reaction [Not Recovered/Not Resolved]
  - Pruritus [Recovered/Resolved]

NARRATIVE: CASE EVENT DATE: 20201109
